FAERS Safety Report 18523358 (Version 1)
Quarter: 2020Q4

REPORT INFORMATION
  Report Type: Spontaneous
  Country: US (occurrence: US)
  Receive Date: 20201119
  Receipt Date: 20201119
  Transmission Date: 20210114
  Serious: Yes (Other)
  Sender: FDA-Public Use
  Company Number: NVSC2020US306628

PATIENT
  Age: 70 Year
  Sex: Female

DRUGS (2)
  1. LAPATINIB [Suspect]
     Active Substance: LAPATINIB
     Indication: PROLACTIN-PRODUCING PITUITARY TUMOUR
     Dosage: 1250 MG, QD
     Route: 048
  2. TEMOZOLOMIDE. [Concomitant]
     Active Substance: TEMOZOLOMIDE
     Indication: PROLACTIN-PRODUCING PITUITARY TUMOUR
     Dosage: UNK
     Route: 065

REACTIONS (4)
  - Malignant neoplasm progression [Unknown]
  - Product use in unapproved indication [Unknown]
  - Prolactin-producing pituitary tumour [Unknown]
  - Metastases to central nervous system [Unknown]
